FAERS Safety Report 5819175-2 (Version None)
Quarter: 2008Q3

REPORT INFORMATION
  Report Type: 
  Country: None (occurrence: None)
  Receive Date: 20080723
  Receipt Date: 20080715
  Transmission Date: 20090109
  Serious: Yes (Other)
  Sender: FDA-Public Use
  Company Number: B0502631A

PATIENT
  Age: 53 Year
  Sex: Male

DRUGS (2)
  1. SEROXAT [Suspect]
     Indication: DRUG USE FOR UNKNOWN INDICATION
     Dates: start: 20001201
  2. CIPRAMIL [Concomitant]

REACTIONS (13)
  - ANXIETY [None]
  - APPETITE DISORDER [None]
  - CONSTIPATION [None]
  - DEPRESSED MOOD [None]
  - DRUG WITHDRAWAL SYNDROME [None]
  - FATIGUE [None]
  - FEAR [None]
  - INTENTIONAL SELF-INJURY [None]
  - PANIC ATTACK [None]
  - PARAESTHESIA [None]
  - SLEEP DISORDER [None]
  - SUICIDAL IDEATION [None]
  - VISUAL IMPAIRMENT [None]
